FAERS Safety Report 15975205 (Version 2)
Quarter: 2019Q2

REPORT INFORMATION
  Report Type: Spontaneous
  Country: US (occurrence: US)
  Receive Date: 20190218
  Receipt Date: 20190517
  Transmission Date: 20190711
  Serious: Yes (Disabling, Other)
  Sender: FDA-Public Use
  Company Number: US-TORRENT-00007656

PATIENT
  Sex: Female
  Weight: 88 kg

DRUGS (1)
  1. LOSARTAN AND HYDROCHLOROTHIAZIDE [Suspect]
     Active Substance: HYDROCHLOROTHIAZIDE\LOSARTAN POTASSIUM
     Indication: HYPERTENSION
     Dates: start: 201810

REACTIONS (3)
  - Hemiparesis [Unknown]
  - Cerebrovascular accident [Unknown]
  - Physical disability [Unknown]

NARRATIVE: CASE EVENT DATE: 20181208
